FAERS Safety Report 22234195 (Version 1)
Quarter: 2023Q2

REPORT INFORMATION
  Report Type: Other
  Country: IN (occurrence: None)
  Receive Date: 20230420
  Receipt Date: 20230420
  Transmission Date: 20230721
  Serious: Yes (Hospitalization)
  Sender: FDA-Public Use
  Company Number: IN-ROCHE-3319455

PATIENT
  Sex: Female
  Weight: 45.8 kg

DRUGS (1)
  1. TECENTRIQ [Suspect]
     Active Substance: ATEZOLIZUMAB
     Indication: Malignant melanoma
     Route: 042
     Dates: start: 20230321

REACTIONS (4)
  - Off label use [Unknown]
  - Chest pain [Unknown]
  - Anorectal discomfort [Unknown]
  - Haemoglobin decreased [Unknown]
